FAERS Safety Report 8344532-2 (Version None)
Quarter: 2012Q2

REPORT INFORMATION
  Report Type: 
  Country: None (occurrence: None)
  Receive Date: 20120508
  Receipt Date: 20120427
  Transmission Date: 20120825
  Serious: Yes (Hospitalization)
  Sender: FDA-Public Use
  Company Number: US-JNJFOC-20120500926

PATIENT
  Sex: Male
  Weight: 50.8 kg

DRUGS (6)
  1. TRIAMCINOLONE [Concomitant]
  2. REMICADE [Suspect]
     Indication: INFLAMMATORY BOWEL DISEASE
     Route: 042
     Dates: start: 20071220
  3. XOPENEX [Concomitant]
  4. MESALAMINE [Concomitant]
  5. PRILOSEC [Concomitant]
  6. MULTI-VITAMINS [Concomitant]

REACTIONS (1)
  - CROHN'S DISEASE [None]
